FAERS Safety Report 25192569 (Version 1)
Quarter: 2025Q2

REPORT INFORMATION
  Report Type: Other
  Country: HU (occurrence: HU)
  Receive Date: 20250414
  Receipt Date: 20250414
  Transmission Date: 20250717
  Serious: Yes (Other)
  Sender: LYNE LABORATORIES
  Company Number: HU-Lyne Laboratories Inc.-2174804

PATIENT
  Age: 47 Year
  Sex: Female

DRUGS (9)
  1. DEXAMETHASONE [Suspect]
     Active Substance: DEXAMETHASONE
     Indication: Plasma cell myeloma
  2. BORTEZOMIB [Concomitant]
     Active Substance: BORTEZOMIB
  3. BENDAMUSTINE HYDROCHLORIDE [Concomitant]
     Active Substance: BENDAMUSTINE HYDROCHLORIDE
     Dates: start: 20220719
  4. CARFILZOMIB [Concomitant]
     Active Substance: CARFILZOMIB
     Dates: start: 20220513
  5. POMALIDOMIDE [Concomitant]
     Active Substance: POMALIDOMIDE
     Dates: start: 20220513
  6. LENALIDOMIDE [Concomitant]
     Active Substance: LENALIDOMIDE
     Dates: start: 20200424, end: 20200703
  7. MELPHALAN [Concomitant]
     Active Substance: MELPHALAN
     Dates: start: 20191122
  8. CYCLOPHOSPHAMIDE [Concomitant]
     Active Substance: CYCLOPHOSPHAMIDE
  9. THALIDOMIDE [Concomitant]
     Active Substance: THALIDOMIDE

REACTIONS (2)
  - Steroid diabetes [Unknown]
  - Product use in unapproved indication [Unknown]
